FAERS Safety Report 4761332-0 (Version None)
Quarter: 2005Q3

REPORT INFORMATION
  Report Type: 
  Country: None (occurrence: None)
  Receive Date: 20050901
  Receipt Date: 20050210
  Transmission Date: 20060218
  Serious: Yes (Hospitalization)
  Sender: FDA-Public Use
  Company Number: 2005FR-00250

PATIENT
  Age: 71 Year
  Sex: Male

DRUGS (5)
  1. ASPIRIN [Suspect]
     Indication: MYOCARDIAL ISCHAEMIA
     Dosage: 75 MG OD ORAL
     Route: 048
     Dates: start: 20040401, end: 20041123
  2. ASPIRIN [Suspect]
     Indication: PROPHYLAXIS
     Dosage: 75 MG OD ORAL
     Route: 048
     Dates: start: 20040401, end: 20041123
  3. FLUOXETINE [Suspect]
     Indication: DEPRESSION
     Dosage: 20 MG OD ORAL
     Route: 048
     Dates: start: 20040401
  4. SIMVASTATIN [Concomitant]
  5. ATENOLOL [Concomitant]

REACTIONS (2)
  - GASTRIC ULCER HAEMORRHAGE [None]
  - MELAENA [None]
